FAERS Safety Report 7150607-6 (Version None)
Quarter: 2010Q4

REPORT INFORMATION
  Report Type: 
  Country: None (occurrence: None)
  Receive Date: 20101210
  Receipt Date: 20101206
  Transmission Date: 20110411
  Serious: Yes (Hospitalization)
  Sender: FDA-Public Use
  Company Number: FR-PFIZER INC-2010164603

PATIENT
  Age: 79 Year
  Sex: Male
  Weight: 89 kg

DRUGS (12)
  1. NEURONTIN [Suspect]
     Indication: NEURALGIA
     Dosage: 300 MG, 3X/DAY
     Route: 048
     Dates: start: 20101003, end: 20101102
  2. TAZOCILLINE [Suspect]
     Dosage: 4 G, 3X/DAY
     Route: 042
     Dates: start: 20100831, end: 20101102
  3. CIFLOX [Suspect]
     Dosage: 400 MG, 3X/DAY
     Route: 042
  4. CIFLOX [Suspect]
     Dosage: 400 MG, 2X/DAY
     Route: 042
     Dates: start: 20100915
  5. CIFLOX [Suspect]
     Dosage: 750 MG, 2X/DAY
     Route: 048
     Dates: start: 20101005, end: 20101101
  6. CIFLOX [Suspect]
     Dosage: 500 MG, 2X/DAY
     Route: 048
     Dates: start: 20101101, end: 20101102
  7. MIANSERIN HYDROCHLORIDE [Suspect]
     Dosage: 30 MG, 1X/DAY
     Route: 048
     Dates: start: 20101101, end: 20101102
  8. TAHOR [Concomitant]
     Dosage: UNK
  9. LOVENOX [Concomitant]
  10. KARDEGIC [Concomitant]
  11. CARDENSIEL [Concomitant]
  12. LASIX [Concomitant]

REACTIONS (5)
  - ANXIETY [None]
  - HALLUCINATION [None]
  - HEPATIC FAILURE [None]
  - HEPATOCELLULAR INJURY [None]
  - HYPOTENSION [None]
